FAERS Safety Report 4286253-1 (Version None)
Quarter: 2004Q1

REPORT INFORMATION
  Report Type: 
  Country: None (occurrence: None)
  Receive Date: 20040205
  Receipt Date: 20040205
  Transmission Date: 20041129
  Serious: Yes (Hospitalization)
  Sender: FDA-Public Use
  Company Number: None

PATIENT
  Age: 85 Year
  Sex: Male
  Weight: 61.6892 kg

DRUGS (1)
  1. HEPARIN [Suspect]
     Indication: DEEP VEIN THROMBOSIS
     Dosage: 600UNITS/HR
     Dates: start: 20040122, end: 20040126

REACTIONS (3)
  - HEPARIN-INDUCED THROMBOCYTOPENIA [None]
  - INFUSION SITE REACTION [None]
  - PURPURA [None]
